FAERS Safety Report 24248688 (Version 1)
Quarter: 2024Q3

REPORT INFORMATION
  Report Type: Report from Study
  Country: HN (occurrence: HN)
  Receive Date: 20240826
  Receipt Date: 20240826
  Transmission Date: 20241016
  Serious: Yes (Hospitalization, Other)
  Sender: MYLAN
  Company Number: HN-MYLANLABS-2024M1077998

PATIENT
  Age: 64 Year
  Sex: Female

DRUGS (2)
  1. LIPITOR [Suspect]
     Active Substance: ATORVASTATIN CALCIUM
     Indication: Blood cholesterol
     Dosage: 40 MILLIGRAM, QD (DAILY)
     Route: 048
  2. NORVASC [Suspect]
     Active Substance: AMLODIPINE BESYLATE
     Indication: Blood pressure measurement
     Dosage: 10 MILLIGRAM, QD (DAILY)
     Route: 048

REACTIONS (2)
  - Bacterial infection [Not Recovered/Not Resolved]
  - Vascular graft [Recovered/Resolved]

NARRATIVE: CASE EVENT DATE: 20240819
